FAERS Safety Report 6058714-6 (Version None)
Quarter: 2009Q1

REPORT INFORMATION
  Report Type: 
  Country: None (occurrence: None)
  Receive Date: 20090130
  Receipt Date: 20090122
  Transmission Date: 20090719
  Serious: Yes (Hospitalization)
  Sender: FDA-Public Use
  Company Number: US-ABBOTT-09P-163-0499362-00

PATIENT
  Sex: Female
  Weight: 82.628 kg

DRUGS (9)
  1. VICODIN [Suspect]
     Indication: BACK PAIN
     Dates: start: 20030101
  2. VICODIN [Suspect]
     Indication: NECK PAIN
  3. OXYCONTIN [Concomitant]
     Indication: NECK PAIN
     Dates: start: 20070301
  4. OXYCONTIN [Concomitant]
     Indication: BACK PAIN
  5. EMATRIPALINE [Concomitant]
     Indication: MYALGIA
     Dates: start: 19970101
  6. SYNTHROID [Concomitant]
     Indication: HYPOTHYROIDISM
     Dates: start: 19940101
  7. CYMBALTA [Concomitant]
     Indication: NEURALGIA
     Dates: start: 20050101
  8. XANAX [Concomitant]
     Indication: MUSCLE RELAXANT THERAPY
     Dates: start: 20080101
  9. LUBIPROSTONE [Concomitant]
     Indication: CONSTIPATION
     Dates: start: 20070301

REACTIONS (11)
  - BACK PAIN [None]
  - BREAKTHROUGH PAIN [None]
  - DRY MOUTH [None]
  - GINGIVAL DISORDER [None]
  - JAW DISORDER [None]
  - LOOSE TOOTH [None]
  - NECK PAIN [None]
  - RESORPTION BONE INCREASED [None]
  - SPINAL FUSION SURGERY [None]
  - URINARY TRACT INFECTION [None]
  - VOMITING [None]
